FAERS Safety Report 24228717 (Version 1)
Quarter: 2024Q3

REPORT INFORMATION
  Report Type: Spontaneous
  Country: US (occurrence: US)
  Receive Date: 20240820
  Receipt Date: 20240820
  Transmission Date: 20241016
  Serious: No
  Sender: SANOFI AVENTIS
  Company Number: US-SA-2023MK000099

PATIENT
  Age: 27 Year
  Sex: Male

DRUGS (3)
  1. AFREZZA [Suspect]
     Active Substance: INSULIN HUMAN
     Indication: Diabetes mellitus
     Dosage: 4-16 UNITS 3 TIMES DAILY AND ADDITIONAL UNITS AS NEEDED, MAX 48 UNITS
  2. AFREZZA [Suspect]
     Active Substance: INSULIN HUMAN
     Dosage: 4-16 UNITS 3 TIMES DAILY AND ADDITIONAL UNITS AS NEEDED, MAX 48 UNITS
  3. AFREZZA [Suspect]
     Active Substance: INSULIN HUMAN
     Dosage: 4-16 UNITS 3 TIMES DAILY AND ADDITIONAL UNITS AS NEEDED, MAX 48 UNITS

REACTIONS (1)
  - Cough [Not Recovered/Not Resolved]
